FAERS Safety Report 8343710-6 (Version None)
Quarter: 2012Q2

REPORT INFORMATION
  Report Type: 
  Country: None (occurrence: None)
  Receive Date: 20120508
  Receipt Date: 20120301
  Transmission Date: 20120825
  Serious: No
  Sender: FDA-Public Use
  Company Number: US-BAUSCH-2012BL001476

PATIENT
  Age: 78 Year
  Sex: Female

DRUGS (2)
  1. LOTEMAX [Suspect]
     Indication: PRODUCT USED FOR UNKNOWN INDICATION
     Route: 047
     Dates: start: 20120207, end: 20120210
  2. COMBIGAN [Concomitant]
     Route: 047

REACTIONS (2)
  - EYE INFLAMMATION [None]
  - OCULAR HYPERAEMIA [None]
